FAERS Safety Report 16440138 (Version 1)
Quarter: 2019Q2

REPORT INFORMATION
  Report Type: Report from Study
  Country: US (occurrence: US)
  Receive Date: 20190617
  Receipt Date: 20190617
  Transmission Date: 20190711
  Serious: Yes (Life-Threatening, Hospitalization)
  Sender: FDA-Public Use
  Company Number: US-TESARO-2019-TSO00846-US

PATIENT
  Age: 61 Year
  Sex: Female
  Weight: 189.5 kg

DRUGS (10)
  1. ONDANSETRON [Concomitant]
     Active Substance: ONDANSETRON
     Indication: NAUSEA
     Dosage: 8 MG, Q8 PRN
     Route: 048
  2. FLONASE                            /00908302/ [Concomitant]
     Active Substance: MOMETASONE FUROATE
     Indication: PRODUCT USED FOR UNKNOWN INDICATION
     Dosage: UNK
  3. IBUPROFEN. [Concomitant]
     Active Substance: IBUPROFEN
     Indication: PAIN
     Dosage: 600 MG, Q6 PRN
     Route: 048
  4. LIPITOR [Concomitant]
     Active Substance: ATORVASTATIN CALCIUM
     Indication: PRODUCT USED FOR UNKNOWN INDICATION
     Dosage: 40 MG, QD
     Route: 048
  5. PROCHLORPERAZINE. [Concomitant]
     Active Substance: PROCHLORPERAZINE
     Indication: NAUSEA
     Dosage: 10 MG, Q6 PRN
     Route: 048
  6. METFORMIN [Concomitant]
     Active Substance: METFORMIN HYDROCHLORIDE
     Indication: PRODUCT USED FOR UNKNOWN INDICATION
     Dosage: 800 MG, 1/2 TAB IN AM AND 1/2 PM
  7. ASPIRIN. [Concomitant]
     Active Substance: ASPIRIN
     Indication: CEREBROVASCULAR ACCIDENT
     Dosage: 81 MG, QD
     Route: 048
  8. ZEJULA [Suspect]
     Active Substance: NIRAPARIB
     Indication: OVARIAN CANCER
     Dosage: 200 MG, QD
     Route: 048
     Dates: start: 20190204, end: 20190211
  9. ZEJULA [Suspect]
     Active Substance: NIRAPARIB
     Dosage: 100 MG DAILY
     Route: 048
     Dates: start: 20190308
  10. ZYRTEC [Concomitant]
     Active Substance: CETIRIZINE HYDROCHLORIDE
     Indication: PRODUCT USED FOR UNKNOWN INDICATION
     Dosage: 1 DF, QD
     Route: 048

REACTIONS (24)
  - Alopecia [Unknown]
  - Red cell distribution width increased [Not Recovered/Not Resolved]
  - Renal function test abnormal [Recovered/Resolved]
  - Heart rate increased [Not Recovered/Not Resolved]
  - Product dose omission [Unknown]
  - Headache [Recovered/Resolved]
  - Haemoglobin decreased [Not Recovered/Not Resolved]
  - Ascites [Recovered/Resolved]
  - Neck pain [Recovered/Resolved]
  - Back pain [Recovered/Resolved]
  - Platelet count decreased [Recovered/Resolved]
  - Blood urea increased [Recovered/Resolved]
  - Memory impairment [Unknown]
  - Haematocrit decreased [Not Recovered/Not Resolved]
  - Fatigue [Recovered/Resolved]
  - Glomerular filtration rate decreased [Recovered/Resolved]
  - Blood glucose increased [Recovering/Resolving]
  - Nausea [Recovered/Resolved]
  - Pain [Unknown]
  - Red blood cell count decreased [Not Recovered/Not Resolved]
  - Pelvic mass [Unknown]
  - Platelet count abnormal [Recovered/Resolved]
  - Constipation [Recovered/Resolved]
  - Nasopharyngitis [Unknown]

NARRATIVE: CASE EVENT DATE: 20190128
